FAERS Safety Report 8506580-9 (Version None)
Quarter: 2012Q3

REPORT INFORMATION
  Report Type: 
  Country: None (occurrence: None)
  Receive Date: 20120712
  Receipt Date: 20120613
  Transmission Date: 20120928
  Serious: Yes (Hospitalization, Other)
  Sender: FDA-Public Use
  Company Number: US-JNJFOC-20100905038

PATIENT
  Sex: Female
  Weight: 99.79 kg

DRUGS (12)
  1. CORGARD [Concomitant]
     Indication: CARDIAC DISORDER
     Route: 048
  2. AVANDAMET [Concomitant]
     Indication: DIABETES MELLITUS
     Route: 048
  3. BACTRIM DS [Concomitant]
     Indication: URINARY TRACT INFECTION
     Route: 048
     Dates: start: 20100911, end: 20100912
  4. ACTONEL [Concomitant]
     Route: 048
  5. ZOLOFT [Concomitant]
     Indication: FEELING OF RELAXATION
     Route: 048
  6. LEVAQUIN [Suspect]
     Indication: URINARY TRACT INFECTION
     Route: 048
     Dates: start: 20100911, end: 20100912
  7. BACTRIM DS [Concomitant]
     Indication: KIDNEY INFECTION
     Route: 048
     Dates: start: 20100911, end: 20100912
  8. NORVASC [Concomitant]
     Indication: HYPERTENSION
     Route: 048
  9. LOSARTAN POTASSIUM [Concomitant]
     Route: 048
  10. HYZAAR [Concomitant]
     Indication: HYPERTENSION
     Route: 048
  11. KLOR-CON [Concomitant]
     Indication: MUSCLE SPASMS
     Route: 048
  12. NITROGLYCERIN [Concomitant]
     Indication: CARDIAC DISORDER
     Route: 048

REACTIONS (9)
  - HEART RATE IRREGULAR [None]
  - NERVOUSNESS [None]
  - NAUSEA [None]
  - SWELLING FACE [None]
  - CHEST PAIN [None]
  - DRUG HYPERSENSITIVITY [None]
  - POOR QUALITY SLEEP [None]
  - FUNGAL INFECTION [None]
  - LIP DRY [None]
